FAERS Safety Report 6531491-8 (Version None)
Quarter: 2010Q1

REPORT INFORMATION
  Report Type: 
  Country: None (occurrence: None)
  Receive Date: 20100108
  Receipt Date: 20080825
  Transmission Date: 20100710
  Serious: No
  Sender: FDA-Public Use
  Company Number: US-BAYER-200813539BCC

PATIENT
  Age: 85 Year
  Sex: Female
  Weight: 68 kg

DRUGS (11)
  1. ALEVE [Suspect]
     Indication: MUSCULOSKELETAL PAIN
     Dosage: TOTAL DAILY DOSE: 220 MG  UNIT DOSE: 220 MG
     Route: 048
     Dates: start: 20080818
  2. GLIPIZIDE [Concomitant]
     Route: 048
  3. CALCIUM [Concomitant]
     Dosage: 600+D
  4. LEVOTHYROXINE SODIUM [Concomitant]
     Route: 048
  5. METFORMIN HCL [Concomitant]
     Route: 048
  6. HYDROCHLOROTHIAZIDE [Concomitant]
     Route: 048
  7. AMLODIPINE [Concomitant]
     Route: 048
  8. MULTI-VITAMIN [Concomitant]
     Dosage: CENTRALVITE
     Route: 048
  9. ASPIRIN [Concomitant]
     Dosage: BIMART SAFETY COATED
     Route: 048
  10. TOLTERODINE TARTRATE [Concomitant]
     Route: 048
  11. SIMVASTATIN [Concomitant]

REACTIONS (1)
  - MUSCULOSKELETAL PAIN [None]
